FAERS Safety Report 8166017 (Version 10)
Quarter: 2014Q1

REPORT INFORMATION
  Report Type: Spontaneous
  Country: GB (occurrence: None)
  Receive Date: 20110920
  Receipt Date: 20140107
  Transmission Date: 20141002
  Serious: Yes (Life-Threatening, Hospitalization, Disabling, Other)
  Sender: FDA-Public Use
  Company Number: AUR-APL-2011-04925

PATIENT
  Age: 30 Year
  Sex: Female
  Weight: 63.5 kg

DRUGS (20)
  1. MIRTAZAPINE (MIRTAZAPINE) [Suspect]
     Indication: DEPRESSION
     Dosage: 60 MG (30 MG, 2 IN 1 D)
     Route: 048
     Dates: start: 20100923, end: 20101108
  2. PAROXETINE HYDROCHLORIDE [Suspect]
     Indication: DEPRESSION
     Route: 048
     Dates: start: 19990801, end: 20110706
  3. PAROXETINE HYDROCHLORIDE [Suspect]
     Indication: POST-TRAUMATIC STRESS DISORDER
     Route: 048
     Dates: start: 19990801, end: 20110706
  4. DOMPERIDONE (DOMPERIDONE) [Suspect]
     Indication: PRODUCT USED FOR UNKNOWN INDICATION
  5. CODEINE (CODEINE) [Suspect]
     Indication: ANALGESIC THERAPY
     Route: 048
     Dates: start: 2002, end: 2002
  6. OMEPRAZOLE (OMEPRAZOLE) [Suspect]
     Indication: DYSPEPSIA
     Dates: start: 20110525
  7. CLONAZEPAM (CLONAZEPAM) (CLONAZEPAM) [Suspect]
     Indication: SEDATION
     Route: 048
     Dates: start: 20110224, end: 20110510
  8. LORAZEPAM (LORAZEPAM) [Suspect]
     Indication: SEDATION
     Dosage: 4 MG (1 MG, 4 IN 1 D), ORAL
     Route: 048
     Dates: start: 20110523, end: 20110627
  9. LORAZEPAM (LORAZEPAM) [Suspect]
     Indication: MUSCLE SPASMS
     Dosage: 4 MG (1 MG, 4 IN 1 D), ORAL
     Route: 048
     Dates: start: 20110523, end: 20110627
  10. QUETIAPINE (QUETIAPINE) [Suspect]
     Indication: PSYCHOTIC DISORDER
     Dosage: (300 MG), ORAL
     Route: 048
     Dates: start: 20110224, end: 20110506
  11. SEROXAT [Suspect]
     Indication: MUSCLE SPASMS
     Dosage: 60 MG (20 MG, 3 IN 1 D)
     Route: 048
     Dates: start: 19990801, end: 201105
  12. TRAMADOL (TRAMADOL) [Suspect]
     Indication: ANALGESIC THERAPY
     Route: 048
     Dates: start: 20080722
  13. TRAMADOL (TRAMADOL) [Suspect]
     Indication: NECK PAIN
     Route: 048
     Dates: start: 20080722
  14. TRAMADOL (TRAMADOL) [Suspect]
     Indication: BACK PAIN
     Route: 048
     Dates: start: 20080722
  15. AMITRIPTYLINE (AMITRIPTYLINE) [Suspect]
     Indication: MUSCLE SPASMS
     Dates: start: 20110810
  16. AMITRIPTYLINE (AMITRIPTYLINE) [Suspect]
     Indication: NEURALGIA
     Dates: start: 20110810
  17. DIAZEPAM (DIAZEPAM) [Suspect]
     Indication: MUSCLE SPASMS
     Dosage: 20 MG (5 MG, 4 IN 1 D)
     Dates: start: 20110725
  18. DIAZEPAM (DIAZEPAM) [Suspect]
     Indication: NEURALGIA
     Dosage: 20 MG (5 MG, 4 IN 1 D)
     Dates: start: 20110725
  19. PROCYCLIDINE [Suspect]
     Indication: OCULOGYRIC CRISIS
     Dates: start: 1995, end: 1996
  20. PROCYCLIDINE [Suspect]
     Indication: EXTRAPYRAMIDAL DISORDER
     Dates: start: 1995, end: 1996

REACTIONS (84)
  - Serotonin syndrome [None]
  - Suicidal behaviour [None]
  - Dissociation [None]
  - Paraesthesia [None]
  - Disorientation [None]
  - Aphasia [None]
  - Musculoskeletal stiffness [None]
  - Visual impairment [None]
  - Cyanosis [None]
  - Hypoaesthesia oral [None]
  - Muscle spasms [None]
  - Contusion [None]
  - Malaise [None]
  - Mania [None]
  - Restless legs syndrome [None]
  - Pregnancy [None]
  - Dyspnoea [None]
  - Fatigue [None]
  - Hypotonia [None]
  - Feeling jittery [None]
  - Convulsion [None]
  - Premature labour [None]
  - Maternal exposure during pregnancy [None]
  - Road traffic accident [None]
  - Back pain [None]
  - Neck pain [None]
  - Sleep disorder [None]
  - Anxiety [None]
  - Headache [None]
  - Arthralgia [None]
  - Myalgia [None]
  - Restlessness [None]
  - Disturbance in attention [None]
  - Agitation [None]
  - Emotional disorder [None]
  - Irritability [None]
  - Depression [None]
  - Suicidal ideation [None]
  - Decreased appetite [None]
  - Dizziness [None]
  - Blood sodium decreased [None]
  - Hallucination [None]
  - Depersonalisation [None]
  - Delirium [None]
  - Pyrexia [None]
  - Pallor [None]
  - H1N1 influenza [None]
  - Menstruation irregular [None]
  - Mood swings [None]
  - Pruritus [None]
  - Psychotic disorder [None]
  - Parosmia [None]
  - Sensory disturbance [None]
  - Urinary retention [None]
  - Balance disorder [None]
  - Swollen tongue [None]
  - Vision blurred [None]
  - Swelling face [None]
  - Lip swelling [None]
  - Heart rate increased [None]
  - Gastric pH decreased [None]
  - VIIth nerve paralysis [None]
  - Speech disorder [None]
  - Tinnitus [None]
  - Cogwheel rigidity [None]
  - Drooling [None]
  - Schizophrenia [None]
  - Abasia [None]
  - Drug withdrawal syndrome [None]
  - Dystonia [None]
  - Feeling of body temperature change [None]
  - Paralysis [None]
  - Eye pain [None]
  - Drug interaction [None]
  - Vomiting [None]
  - Nightmare [None]
  - Incontinence [None]
  - Psychotic disorder [None]
  - Agitation [None]
  - Visual impairment [None]
  - Dissociation [None]
  - Tremor [None]
  - Adverse drug reaction [None]
  - Paraesthesia [None]
